FAERS Safety Report 17699681 (Version 1)
Quarter: 2020Q2

REPORT INFORMATION
  Report Type: Spontaneous
  Country: US (occurrence: US)
  Receive Date: 20200423
  Receipt Date: 20200423
  Transmission Date: 20200714
  Serious: Yes (Hospitalization, Disabling)
  Sender: FDA-Public Use
  Company Number: US-PFIZER INC-2020159064

PATIENT
  Age: 52 Year
  Sex: Female
  Weight: 82.1 kg

DRUGS (1)
  1. AROMASIN [Suspect]
     Active Substance: EXEMESTANE
     Indication: BREAST CANCER
     Dosage: 25 MG, 1X/DAY
     Route: 048
     Dates: start: 2012

REACTIONS (6)
  - Lymphoedema [Not Recovered/Not Resolved]
  - Pyrexia [Recovered/Resolved]
  - Skin infection [Recovering/Resolving]
  - Scratch [Unknown]
  - Pain [Recovered/Resolved]
  - Peripheral swelling [Not Recovered/Not Resolved]

NARRATIVE: CASE EVENT DATE: 201301
